FAERS Safety Report 12644150 (Version 1)
Quarter: 2016Q3

REPORT INFORMATION
  Report Type: Spontaneous
  Country: US (occurrence: US)
  Receive Date: 20160811
  Receipt Date: 20160811
  Transmission Date: 20161109
  Serious: Yes (Hospitalization, Other)
  Sender: FDA-Public Use
  Company Number: US-GLAXOSMITHKLINE-US2016GSK114635

PATIENT
  Sex: Female

DRUGS (1)
  1. ADVAIR HFA [Suspect]
     Active Substance: FLUTICASONE PROPIONATE\SALMETEROL XINAFOATE

REACTIONS (7)
  - Surgery [Unknown]
  - Ill-defined disorder [Unknown]
  - Pain [Unknown]
  - Spinal operation [Unknown]
  - Back disorder [Unknown]
  - Body height decreased [Unknown]
  - Spinal cord disorder [Unknown]
